FAERS Safety Report 6726220-9 (Version None)
Quarter: 2010Q2

REPORT INFORMATION
  Report Type: 
  Country: None (occurrence: None)
  Receive Date: 20100514
  Receipt Date: 20100504
  Transmission Date: 20101027
  Serious: Yes (Hospitalization, Other)
  Sender: FDA-Public Use
  Company Number: US-PFIZER INC-2010039260

PATIENT
  Age: 85 Year
  Sex: Male
  Weight: 70 kg

DRUGS (3)
  1. LYRICA [Suspect]
     Indication: SCIATICA
     Dosage: 75 MG, AT BEDTIME
     Route: 048
     Dates: start: 20100323, end: 20100324
  2. LYRICA [Suspect]
     Indication: RADICULOPATHY
     Route: 048
  3. FLECTOR [Concomitant]
     Indication: PAIN
     Dosage: 1.5%, UNK

REACTIONS (8)
  - CARDIAC INFECTION [None]
  - DYSARTHRIA [None]
  - FEELING DRUNK [None]
  - MUSCULAR WEAKNESS [None]
  - OSTEOMYELITIS [None]
  - PAIN [None]
  - SOMNOLENCE [None]
  - SWOLLEN TONGUE [None]
